FAERS Safety Report 23753529 (Version 1)
Quarter: 2024Q2

REPORT INFORMATION
  Report Type: Spontaneous
  Country: US (occurrence: None)
  Receive Date: 20240417
  Receipt Date: 20240417
  Transmission Date: 20240716
  Serious: Yes (Disabling, Other)
  Sender: FDA-Public Use
  Company Number: None

PATIENT
  Age: 65 Year
  Sex: Female
  Weight: 85.5 kg

DRUGS (8)
  1. PRAMIPEXOLE [Suspect]
     Active Substance: PRAMIPEXOLE\PRAMIPEXOLE DIHYDROCHLORIDE
     Indication: Restless legs syndrome
     Dosage: 30 TABLETS AS NEEDED ORAL
     Route: 048
     Dates: start: 20011121, end: 20240416
  2. Pramipexole 1.5 [Concomitant]
  3. LOSARTAN [Concomitant]
     Active Substance: LOSARTAN
  4. ADDERALL [Concomitant]
     Active Substance: AMPHETAMINE ASPARTATE\AMPHETAMINE SULFATE\DEXTROAMPHETAMINE SACCHARATE\DEXTROAMPHETAMINE SULFATE
  5. Gapentin 300mg [Concomitant]
  6. Magnesium glycinate 420mg one daily Iron (as ferrous fumimate) 45mg tw [Concomitant]
     Dosage: FREQUENCY : DAILY;?
  7. VITAMIN D3 [Concomitant]
     Dosage: FREQUENCY : DAILY;?
  8. Centrum silver women 50+ once [Concomitant]

REACTIONS (7)
  - Spinal stenosis [None]
  - Hip arthroplasty [None]
  - Compulsive shopping [None]
  - Somnolence [None]
  - Nonspecific reaction [None]
  - Emotional disorder [None]
  - Gait disturbance [None]

NARRATIVE: CASE EVENT DATE: 20180406
